FAERS Safety Report 12282010 (Version 1)
Quarter: 2016Q2

REPORT INFORMATION
  Report Type: Spontaneous
  Country: US (occurrence: None)
  Receive Date: 20160418
  Receipt Date: 20160418
  Transmission Date: 20160815
  Serious: No
  Sender: FDA-Public Use
  Company Number: None

PATIENT
  Age: 54 Year
  Sex: Female
  Weight: 44.45 kg

DRUGS (4)
  1. FLUNISOLIDE. [Suspect]
     Active Substance: FLUNISOLIDE
     Dosage: 25MCG/ACT 2 SPRAYS EACH NOSTRIL TWICE A DAY  NASAL
     Route: 045
     Dates: start: 20151102, end: 20151202
  2. FLUTICASONE PROPIONATE. [Suspect]
     Active Substance: FLUTICASONE PROPIONATE
     Dosage: 50MCG/ACT  1-2 SPRAYS  EACH NOSTRIL DAILY NASAL
     Route: 045
     Dates: start: 20160108, end: 20160208
  3. NASACORT AQ [Suspect]
     Active Substance: TRIAMCINOLONE ACETONIDE
  4. BUDESONIDE NASAL SPRAY [Suspect]
     Active Substance: BUDESONIDE

REACTIONS (2)
  - Headache [None]
  - Nasal discomfort [None]
